FAERS Safety Report 13922056 (Version 1)
Quarter: 2017Q3

REPORT INFORMATION
  Report Type: Spontaneous
  Country: US (occurrence: US)
  Receive Date: 20170830
  Receipt Date: 20170830
  Transmission Date: 20171127
  Serious: No
  Sender: FDA-Public Use
  Company Number: US-PFIZER INC-2017372762

PATIENT
  Sex: Female

DRUGS (3)
  1. TOPIRAMATE. [Suspect]
     Active Substance: TOPIRAMATE
     Dosage: UNK
  2. PRAZOSIN HCL [Suspect]
     Active Substance: PRAZOSIN HYDROCHLORIDE
     Dosage: UNK
  3. TOPAMAX [Suspect]
     Active Substance: TOPIRAMATE
     Dosage: UNK

REACTIONS (2)
  - Urticaria [Unknown]
  - Drug hypersensitivity [Unknown]
